FAERS Safety Report 11883524 (Version 2)
Quarter: 2016Q1

REPORT INFORMATION
  Report Type: Report from Study
  Country: BR (occurrence: BR)
  Receive Date: 20151231
  Receipt Date: 20160118
  Transmission Date: 20160526
  Serious: Yes (Other)
  Sender: FDA-Public Use
  Company Number: PHHY2014BR125341

PATIENT
  Sex: Female
  Weight: 73 kg

DRUGS (5)
  1. ACLASTA [Suspect]
     Active Substance: ZOLEDRONIC ACID
     Indication: OSTEOPOROSIS
     Dosage: 5 MG, Q12MO
     Route: 042
     Dates: start: 20140919
  2. PRESS PLUS [Concomitant]
     Indication: HYPERTENSION
     Dosage: 1 DF, QD (10 MG)
     Route: 048
     Dates: start: 201407
  3. PISTA [Concomitant]
     Indication: DEPRESSION
     Dosage: 1 DF, QD
     Route: 065
     Dates: start: 2013
  4. CALCIUM +D3 [Concomitant]
     Active Substance: CALCIUM\CHOLECALCIFEROL
     Indication: OSTEOPOROSIS
     Dosage: 2 DF, QD
     Route: 065
     Dates: start: 201409
  5. CITALOR [Concomitant]
     Active Substance: ATORVASTATIN
     Indication: PRODUCT USED FOR UNKNOWN INDICATION
     Dosage: 1 DF, QD
     Route: 065
     Dates: start: 201403

REACTIONS (8)
  - Rib fracture [Recovering/Resolving]
  - Malaise [Unknown]
  - Spinal fracture [Recovering/Resolving]
  - Gout [Recovered/Resolved]
  - Bone pain [Recovering/Resolving]
  - Peripheral swelling [Recovering/Resolving]
  - Weight decreased [Not Recovered/Not Resolved]
  - Arthritis [Recovering/Resolving]
